FAERS Safety Report 23099435 (Version 1)
Quarter: 2023Q4

REPORT INFORMATION
  Report Type: Spontaneous
  Country: PT (occurrence: PT)
  Receive Date: 20231024
  Receipt Date: 20231024
  Transmission Date: 20240109
  Serious: Yes (Death, Other)
  Sender: FDA-Public Use
  Company Number: PT-SA-2023SA103603

PATIENT
  Age: 54 Year
  Sex: Female
  Weight: 85 kg

DRUGS (3)
  1. ENOXAPARIN SODIUM [Suspect]
     Active Substance: ENOXAPARIN SODIUM
     Indication: Deep vein thrombosis
     Dosage: UNK
     Route: 058
     Dates: start: 202207, end: 20220805
  2. TAFAMIDIS MEGLUMINE [Suspect]
     Active Substance: TAFAMIDIS MEGLUMINE
     Indication: Familial amyloidosis
     Dosage: 20 MG, QD
     Route: 048
     Dates: start: 20170713, end: 20220805
  3. PREGABALIN [Concomitant]
     Active Substance: PREGABALIN
     Indication: Neuralgia
     Dosage: UNK
     Route: 048
     Dates: start: 20180309, end: 20220805

REACTIONS (3)
  - Multiple organ dysfunction syndrome [Fatal]
  - Respiratory failure [Fatal]
  - Pulmonary haemorrhage [Fatal]

NARRATIVE: CASE EVENT DATE: 20220805
